FAERS Safety Report 8075785-6 (Version None)
Quarter: 2012Q1

REPORT INFORMATION
  Report Type: 
  Country: None (occurrence: None)
  Receive Date: 20120127
  Receipt Date: 20120119
  Transmission Date: 20120608
  Serious: Yes (Life-Threatening, Hospitalization, Other)
  Sender: FDA-Public Use
  Company Number: US-ROXANE LABORATORIES, INC.-2012-RO-00507RO

PATIENT
  Age: 58 Year
  Sex: Male
  Weight: 90 kg

DRUGS (9)
  1. VALSARTAN [Suspect]
  2. METOCLOPRAMIDE [Suspect]
     Indication: IMPAIRED GASTRIC EMPTYING
     Dosage: 20 MG
     Route: 048
  3. METOCLOPRAMIDE [Suspect]
     Route: 048
  4. VENLAFAXINE [Suspect]
  5. RABEPRAZOLE SODIUM [Suspect]
  6. CLINDAMYCIN [Suspect]
     Indication: TOOTH EXTRACTION
  7. SERTRALINE HYDROCHLORIDE [Suspect]
  8. NEBIVOLOL [Suspect]
  9. MESALAMINE [Suspect]

REACTIONS (6)
  - OVERDOSE [None]
  - DEHYDRATION [None]
  - NEUROLEPTIC MALIGNANT SYNDROME [None]
  - METABOLIC ACIDOSIS [None]
  - RENAL FAILURE ACUTE [None]
  - CLOSTRIDIUM DIFFICILE COLITIS [None]
